FAERS Safety Report 18974640 (Version 3)
Quarter: 2021Q2

REPORT INFORMATION
  Report Type: Report from Study
  Country: US (occurrence: US)
  Receive Date: 20210305
  Receipt Date: 20210408
  Transmission Date: 20210717
  Serious: No
  Sender: FDA-Public Use
  Company Number: US-UCBSA-2021009174

PATIENT
  Age: 73 Year
  Sex: Female

DRUGS (1)
  1. CERTOLIZUMAB PEGOL [Suspect]
     Active Substance: CERTOLIZUMAB PEGOL
     Indication: RHEUMATOID ARTHRITIS
     Dosage: 400 MILLIGRAM, EV 4 WEEKS
     Dates: start: 20150608, end: 20210118

REACTIONS (7)
  - Myalgia [Unknown]
  - Vaccination complication [Not Recovered/Not Resolved]
  - Therapy interrupted [Unknown]
  - COVID-19 immunisation [Unknown]
  - Urinary tract infection [Not Recovered/Not Resolved]
  - Product availability issue [Unknown]
  - Arthralgia [Not Recovered/Not Resolved]

NARRATIVE: CASE EVENT DATE: 2021
